FAERS Safety Report 9175967 (Version 2)
Quarter: 2013Q2

REPORT INFORMATION
  Report Type: Spontaneous
  Country: RU (occurrence: RU)
  Receive Date: 20130320
  Receipt Date: 20130402
  Transmission Date: 20140414
  Serious: Yes (Life-Threatening, Hospitalization, Other)
  Sender: FDA-Public Use
  Company Number: RU-ALEXION-A201300444

PATIENT
  Age: 7 Year
  Sex: Female

DRUGS (4)
  1. SOLIRIS 300MG [Suspect]
     Indication: HAEMOLYTIC URAEMIC SYNDROME
     Dosage: 600 MG, QW
     Route: 042
     Dates: start: 20130211, end: 20130218
  2. SOLIRIS 300MG [Suspect]
     Dosage: 300 MG, Q2W
     Route: 042
     Dates: start: 20130305
  3. NORVASC [Concomitant]
     Indication: HYPERTENSION
     Route: 048
  4. DIGOXIN [Concomitant]
     Route: 048

REACTIONS (5)
  - Haemorrhagic stroke [Recovering/Resolving]
  - Venous thrombosis [Unknown]
  - Weight decreased [Unknown]
  - Headache [Recovered/Resolved]
  - Visual impairment [Recovered/Resolved]
